FAERS Safety Report 19947427 (Version 1)
Quarter: 2021Q4

REPORT INFORMATION
  Report Type: Spontaneous
  Country: US (occurrence: US)
  Receive Date: 20211012
  Receipt Date: 20211012
  Transmission Date: 20220304
  Serious: No
  Sender: FDA-Public Use
  Company Number: US-TEVA-2021-US-1961135

PATIENT

DRUGS (2)
  1. LIDOCAINE [Suspect]
     Active Substance: LIDOCAINE
     Indication: Spondylitis
     Dosage: ONE NIGHTLY
     Route: 062
  2. LIDOCAINE [Suspect]
     Active Substance: LIDOCAINE
     Indication: Post procedural complication

REACTIONS (3)
  - Pain [Not Recovered/Not Resolved]
  - Spondylitis [Unknown]
  - Off label use [Unknown]

NARRATIVE: CASE EVENT DATE: 20201201
